FAERS Safety Report 16335005 (Version 1)
Quarter: 2019Q2

REPORT INFORMATION
  Report Type: Report from Study
  Country: None (occurrence: BR)
  Receive Date: 20190520
  Receipt Date: 20190520
  Transmission Date: 20190711
  Serious: Yes (Hospitalization, Disabling, Other)
  Sender: FDA-Public Use
  Company Number: BR-ABBVIE-19K-020-2783475-00

PATIENT
  Age: 53 Year
  Sex: Female

DRUGS (8)
  1. HUMIRA [Suspect]
     Active Substance: ADALIMUMAB
     Route: 058
  2. DULOXETINE. [Concomitant]
     Active Substance: DULOXETINE
     Indication: ANXIETY
  3. HUMIRA [Suspect]
     Active Substance: ADALIMUMAB
     Indication: AXIAL SPONDYLOARTHRITIS
     Route: 058
     Dates: start: 20180712
  4. ALPRAZOLAM. [Concomitant]
     Active Substance: ALPRAZOLAM
     Indication: PANIC ATTACK
  5. HUMIRA [Suspect]
     Active Substance: ADALIMUMAB
     Route: 058
  6. DULOXETINE. [Concomitant]
     Active Substance: DULOXETINE
     Indication: FIBROMYALGIA
  7. PREGABALIN. [Suspect]
     Active Substance: PREGABALIN
     Indication: FIBROMYALGIA
     Route: 065
  8. ABLOK PLUS [Concomitant]
     Active Substance: ATENOLOL\CHLORTHALIDONE
     Indication: HYPERTENSION

REACTIONS (22)
  - Musculoskeletal disorder [Recovering/Resolving]
  - Somnolence [Unknown]
  - Diplopia [Unknown]
  - Weight increased [Unknown]
  - Ankylosing spondylitis [Unknown]
  - Arthritis [Recovered/Resolved]
  - Arthritis [Unknown]
  - Pain in extremity [Unknown]
  - Arthritis infective [Recovering/Resolving]
  - Muscle disorder [Unknown]
  - Mobility decreased [Recovering/Resolving]
  - Joint effusion [Recovered/Resolved]
  - Peripheral swelling [Recovering/Resolving]
  - Increased bronchial secretion [Unknown]
  - Memory impairment [Unknown]
  - Gait disturbance [Unknown]
  - Malaise [Recovering/Resolving]
  - Blood pressure increased [Recovering/Resolving]
  - Arthralgia [Unknown]
  - Pneumonia [Recovered/Resolved]
  - Fibromyalgia [Unknown]
  - Therapeutic response shortened [Unknown]

NARRATIVE: CASE EVENT DATE: 201903
